FAERS Safety Report 4329181-5 (Version None)
Quarter: 2004Q1

REPORT INFORMATION
  Report Type: 
  Country: None (occurrence: None)
  Receive Date: 20040329
  Receipt Date: 20031222
  Transmission Date: 20041129
  Serious: No
  Sender: FDA-Public Use
  Company Number: 03P-163-0245650-00

PATIENT
  Sex: Female

DRUGS (7)
  1. HUMIRA [Suspect]
     Indication: RHEUMATOID ARTHRITIS
     Dosage: 40 MG, 1 IN 2 WK, SUBCUTANEOUS
     Route: 058
     Dates: start: 20030611
  2. BUCINDOLOL HYDROCHLORIDE [Concomitant]
  3. OXYCOCET [Concomitant]
  4. FENTANYL CITRATE [Concomitant]
  5. PREDNISONE [Concomitant]
  6. ASPIRIN [Concomitant]
  7. ALENDRONATE SODIUM [Concomitant]

REACTIONS (1)
  - DRUG EFFECT DECREASED [None]
